FAERS Safety Report 5607717-1 (Version None)
Quarter: 2008Q1

REPORT INFORMATION
  Report Type: 
  Country: None (occurrence: None)
  Receive Date: 20080130
  Receipt Date: 20080123
  Transmission Date: 20080703
  Serious: Yes (Other)
  Sender: FDA-Public Use
  Company Number: US-ASTRAZENECA-2008UW01659

PATIENT
  Age: 66 Year
  Sex: Male
  Weight: 88.5 kg

DRUGS (7)
  1. CRESTOR [Suspect]
     Indication: BLOOD CHOLESTEROL INCREASED
     Route: 048
  2. KEPPRA [Concomitant]
  3. AMLODIPINE [Concomitant]
  4. ZETIA [Concomitant]
  5. HYDROCHLOROTHIAZIDE [Concomitant]
  6. FOSINOPRIL SODIUM [Concomitant]
  7. METOPROLOL TARTRATE [Concomitant]

REACTIONS (1)
  - RENAL PAIN [None]
